FAERS Safety Report 4648468-X (Version None)
Quarter: 2005Q2

REPORT INFORMATION
  Report Type: 
  Country: None (occurrence: None)
  Receive Date: 20050427
  Receipt Date: 20050413
  Transmission Date: 20051028
  Serious: Yes (Other)
  Sender: FDA-Public Use
  Company Number: L05-TUR-01473-01

PATIENT
  Age: 48 Year
  Sex: Female

DRUGS (2)
  1. CITALOPRAM [Suspect]
     Indication: DEPRESSIVE SYMPTOM
     Dosage: 20 MG QD
  2. CITALOPRAM [Suspect]
     Indication: DEPRESSIVE SYMPTOM
     Dosage: 10 MG QD PO
     Route: 048

REACTIONS (2)
  - DEPRESSION [None]
  - FEMALE ORGASMIC DISORDER [None]
